FAERS Safety Report 14817972 (Version 1)
Quarter: 2018Q2

REPORT INFORMATION
  Report Type: Spontaneous
  Country: SE (occurrence: SE)
  Receive Date: 20180427
  Receipt Date: 20180427
  Transmission Date: 20180711
  Serious: Yes (Other)
  Sender: FDA-Public Use
  Company Number: SE-ABBVIE-18K-150-2335019-00

PATIENT
  Sex: Male

DRUGS (1)
  1. HUMIRA [Suspect]
     Active Substance: ADALIMUMAB
     Indication: HIDRADENITIS
     Route: 058
     Dates: start: 20170905, end: 201804

REACTIONS (5)
  - Dyspnoea at rest [Unknown]
  - Salivary gland enlargement [Not Recovered/Not Resolved]
  - Salivary gland disorder [Unknown]
  - Sialoadenitis [Unknown]
  - Granuloma [Unknown]
